FAERS Safety Report 8832378 (Version 3)
Quarter: 2012Q4

REPORT INFORMATION
  Report Type: Report from Study
  Country: FR (occurrence: FR)
  Receive Date: 20121009
  Receipt Date: 20121026
  Transmission Date: 20130627
  Serious: Yes (Hospitalization)
  Sender: FDA-Public Use
  Company Number: FR-PFIZER INC-2012240056

PATIENT
  Age: 79 Year
  Sex: Male
  Weight: 75 kg

DRUGS (10)
  1. TEMSIROLIMUS [Suspect]
     Indication: MANTLE CELL LYMPHOMA
     Dosage: UNK
     Dates: start: 20120314, end: 20120318
  2. TEMSIROLIMUS [Suspect]
     Dosage: UNK
     Dates: start: 20120328, end: 20120328
  3. TEMSIROLIMUS [Suspect]
     Dosage: UNK
     Dates: start: 20120412
  4. TEMSIROLIMUS [Suspect]
     Dosage: UNK
     Dates: start: 20120511
  5. ENDOXAN [Concomitant]
     Indication: LYMPHOMA
     Dosage: UNK
     Dates: start: 20120314
  6. MABTHERA [Concomitant]
     Indication: LYMPHOMA
     Dosage: UNK
     Dates: start: 20120315
  7. DOXORUBICIN [Concomitant]
     Indication: LYMPHOMA
     Dosage: UNK
     Dates: start: 20120314
  8. VINCRISTINE [Concomitant]
     Indication: LYMPHOMA
     Dosage: UNK
     Dates: start: 20120314
  9. METHYLPREDNISOLONE [Concomitant]
     Indication: LYMPHOMA
     Dosage: UNK
     Dates: start: 20120315
  10. CORTANCYL [Concomitant]
     Indication: LYMPHOMA
     Dosage: UNK
     Dates: start: 20120316

REACTIONS (1)
  - Febrile neutropenia [Recovered/Resolved]
